FAERS Safety Report 8146303-9 (Version None)
Quarter: 2012Q1

REPORT INFORMATION
  Report Type: 
  Country: None (occurrence: None)
  Receive Date: 20120217
  Receipt Date: 20120215
  Transmission Date: 20120608
  Serious: Yes (Death)
  Sender: FDA-Public Use
  Company Number: CN-ROCHE-1037393

PATIENT
  Age: 74 Year
  Sex: Female

DRUGS (2)
  1. ROCEPHIN [Suspect]
     Indication: PNEUMONITIS
     Route: 041
     Dates: start: 20120115, end: 20120115
  2. SODIUM CHLORIDE 0.9% [Concomitant]
     Route: 041
     Dates: start: 20120115, end: 20120115

REACTIONS (1)
  - ASPHYXIA [None]
